FAERS Safety Report 7842077-7 (Version None)
Quarter: 2011Q4

REPORT INFORMATION
  Report Type: 
  Country: None (occurrence: None)
  Receive Date: 20111025
  Receipt Date: 20111022
  Transmission Date: 20120403
  Serious: Yes (Death)
  Sender: FDA-Public Use
  Company Number: PHHY2011BR93604

PATIENT
  Sex: Female

DRUGS (6)
  1. BEROTEC [Concomitant]
  2. BETAMETHASONE [Concomitant]
  3. FORMOTEROL FUMARATE [Suspect]
     Dosage: UNK UKN, UNK
  4. SALINE [Concomitant]
  5. ATROVENT [Concomitant]
  6. FOLIC ACID [Concomitant]

REACTIONS (1)
  - DEATH [None]
